FAERS Safety Report 12674454 (Version 1)
Quarter: 2016Q3

REPORT INFORMATION
  Report Type: Spontaneous
  Country: US (occurrence: US)
  Receive Date: 20160822
  Receipt Date: 20160822
  Transmission Date: 20161109
  Serious: Yes (Other)
  Sender: FDA-Public Use
  Company Number: US-BEH-2015057410

PATIENT
  Sex: Male
  Weight: 120.2 kg

DRUGS (18)
  1. SODIUM CHLORIDE. [Concomitant]
     Active Substance: SODIUM CHLORIDE
  2. SPIRIVA [Concomitant]
     Active Substance: TIOTROPIUM BROMIDE MONOHYDRATE
  3. DEXAMETHASONE. [Concomitant]
     Active Substance: DEXAMETHASONE
  4. PREDNISONE. [Concomitant]
     Active Substance: PREDNISONE
  5. NORCO [Concomitant]
     Active Substance: ACETAMINOPHEN\HYDROCODONE BITARTRATE
  6. OXYGEN. [Concomitant]
     Active Substance: OXYGEN
  7. ROPINIROLE. [Concomitant]
     Active Substance: ROPINIROLE
  8. ALBUTEROL. [Concomitant]
     Active Substance: ALBUTEROL
  9. TYLENOL [Concomitant]
     Active Substance: ACETAMINOPHEN
  10. DIPHENHYDRAMINE. [Concomitant]
     Active Substance: DIPHENHYDRAMINE
  11. EPIPEN [Concomitant]
     Active Substance: EPINEPHRINE
  12. CEPHALEXIN. [Concomitant]
     Active Substance: CEPHALEXIN
  13. CEFTIN [Concomitant]
     Active Substance: CEFUROXIME AXETIL
  14. BUDESONIDE. [Concomitant]
     Active Substance: BUDESONIDE
  15. VENTOLIN [Concomitant]
     Active Substance: ALBUTEROL SULFATE
  16. INDOMETHACIN. [Concomitant]
     Active Substance: INDOMETHACIN
  17. ZEMAIRA [Suspect]
     Active Substance: .ALPHA.1-PROTEINASE INHIBITOR HUMAN
     Indication: ALPHA-1 ANTI-TRYPSIN DEFICIENCY
     Dosage: 972 MG/VL
     Route: 042
     Dates: start: 20130103
  18. PROTONIX [Concomitant]
     Active Substance: PANTOPRAZOLE SODIUM

REACTIONS (1)
  - Flushing [Unknown]
